FAERS Safety Report 5197728-5 (Version None)
Quarter: 2007Q1

REPORT INFORMATION
  Report Type: 
  Country: None (occurrence: None)
  Receive Date: 20070103
  Receipt Date: 20061225
  Transmission Date: 20070707
  Serious: Yes (Other)
  Sender: FDA-Public Use
  Company Number: JP-JNJFOC-20061206459

PATIENT
  Age: 67 Year
  Sex: Male

DRUGS (7)
  1. ITRIZOLE [Suspect]
     Route: 041
  2. ITRIZOLE [Suspect]
     Indication: BRONCHOPULMONARY ASPERGILLOSIS
     Route: 041
  3. CLARITHROMYCIN [Concomitant]
     Route: 065
  4. MYSLEE [Concomitant]
     Route: 065
  5. PREDNISOLONE [Concomitant]
     Route: 065
  6. GASTER [Concomitant]
     Route: 065
  7. LEVOFLOXACIN [Concomitant]
     Route: 065

REACTIONS (5)
  - HALLUCINATION, AUDITORY [None]
  - HEPATIC FUNCTION ABNORMAL [None]
  - MALAISE [None]
  - NEUROPATHY PERIPHERAL [None]
  - SOMNOLENCE [None]
